FAERS Safety Report 8971665 (Version 1)
Quarter: 2012Q4

REPORT INFORMATION
  Report Type: 
  Country: DE (occurrence: DE)
  Receive Date: 20121217
  Receipt Date: 20121217
  Transmission Date: 20130627
  Serious: Yes (Hospitalization)
  Sender: FDA-Public Use
  Company Number: DE-ELI_LILLY_AND_COMPANY-DE201212000746

PATIENT
  Sex: Male

DRUGS (5)
  1. FORSTEO [Suspect]
     Indication: OSTEOPOROSIS
     Dosage: UNK, qd
     Route: 058
     Dates: start: 20120908, end: 20121031
  2. VITAMINA D [Concomitant]
  3. IBUFLAM                            /00109201/ [Concomitant]
     Dosage: UNK, tid
  4. MORPHINE [Concomitant]
  5. ATARAX [Concomitant]

REACTIONS (3)
  - Lumbar spinal stenosis [Not Recovered/Not Resolved]
  - Post procedural complication [Not Recovered/Not Resolved]
  - Malaise [Unknown]
